FAERS Safety Report 8933320 (Version 4)
Quarter: 2013Q4

REPORT INFORMATION
  Report Type: Report from Study
  Country: NL (occurrence: NL)
  Receive Date: 20121129
  Receipt Date: 20131204
  Transmission Date: 20140711
  Serious: Yes (Hospitalization)
  Sender: FDA-Public Use
  Company Number: PHHO2012NL016568

PATIENT
  Sex: 0

DRUGS (10)
  1. PROGRAF [Suspect]
     Indication: RENAL TRANSPLANT
     Dosage: 3 MG, BID
     Route: 048
     Dates: start: 20120620, end: 20120821
  2. PROGRAF [Suspect]
     Dosage: UNK
     Route: 048
  3. MYFORTIC [Suspect]
     Indication: RENAL TRANSPLANT
     Dosage: 360 MG, BID
     Dates: start: 20120620
  4. PREDNISOLONE SANDOZ [Suspect]
     Indication: RENAL TRANSPLANT
     Dosage: 20 MG, QD
     Dates: start: 20120622
  5. VALCYTE [Suspect]
     Dosage: 10 MG, UNK
     Dates: start: 20120828
  6. CO-TRIMOXAZOL [Concomitant]
     Dosage: 480 MG, QD
     Dates: start: 20121001
  7. NEXIUM I.V. [Concomitant]
     Indication: PROPHYLAXIS
     Dosage: 40 MG, QD
     Dates: start: 20120620
  8. ADALAT [Concomitant]
     Indication: BLOOD PRESSURE NORMAL
     Dosage: 30 MG, QD
     Dates: start: 20120624
  9. LIPITOR [Concomitant]
     Indication: BLOOD CHOLESTEROL DECREASED
     Dosage: 40 MG, QD
     Dates: start: 20120620
  10. ASCAL CARDIO [Concomitant]
     Indication: ANTICOAGULANT THERAPY
     Dosage: 100 MG, QD
     Dates: start: 20120627

REACTIONS (4)
  - Cytomegalovirus infection [Recovered/Resolved]
  - Metabolic acidosis [Recovered/Resolved]
  - Diarrhoea [Recovered/Resolved]
  - BK virus infection [Recovering/Resolving]
